FAERS Safety Report 8505046-X (Version None)
Quarter: 2012Q2

REPORT INFORMATION
  Report Type: 
  Country: None (occurrence: None)
  Receive Date: 20120629
  Receipt Date: 20120620
  Transmission Date: 20120825
  Serious: Yes (Hospitalization)
  Sender: FDA-Public Use
  Company Number: 2012133911

PATIENT
  Age: 73 Year
  Sex: Female

DRUGS (10)
  1. DALTEPARIN SODIUM [Suspect]
     Indication: DEEP VEIN THROMBOSIS
     Dosage: 12500 IU, SUBCUTANEOUS
     Route: 058
     Dates: start: 20091204
  2. ADVAIR HFA [Concomitant]
  3. ALBUTEROL [Concomitant]
  4. LEXAPRO [Concomitant]
  5. LIPITOR [Concomitant]
  6. METOPROLOL TARTRATE [Concomitant]
  7. NEOSPORIN NASAL DROPS (METHOXAMINE HYDROCHLORIDE, NEOMYCIN SULFATE, PO [Concomitant]
  8. PREDNISONE TAB [Concomitant]
  9. DITROPAN [Concomitant]
  10. GEMZAR [Concomitant]

REACTIONS (2)
  - CEREBROVASCULAR ACCIDENT [None]
  - EPISTAXIS [None]
